FAERS Safety Report 6680663-0 (Version None)
Quarter: 2010Q2

REPORT INFORMATION
  Report Type: 
  Country: None (occurrence: None)
  Receive Date: 20100414
  Receipt Date: 20100331
  Transmission Date: 20101027
  Serious: No
  Sender: FDA-Public Use
  Company Number: AR-JNJFOC-20100305704

PATIENT
  Sex: Male
  Weight: 13.5 kg

DRUGS (2)
  1. IBUPIRAC 2% [Suspect]
     Indication: PYREXIA
     Route: 048
  2. DIAZEPAM [Concomitant]

REACTIONS (3)
  - DRUG INEFFECTIVE [None]
  - PRODUCT CONTAMINATION MICROBIAL [None]
  - TREMOR [None]
